FAERS Safety Report 21800410 (Version 1)
Quarter: 2022Q4

REPORT INFORMATION
  Report Type: Spontaneous
  Country: US (occurrence: None)
  Receive Date: 20221229
  Receipt Date: 20221229
  Transmission Date: 20230113
  Serious: No
  Sender: FDA-Public Use
  Company Number: None

PATIENT
  Age: 61 Year
  Sex: Male

DRUGS (1)
  1. BONINE FASTER-ACTING [Suspect]
     Active Substance: DIPHENHYDRAMINE HYDROCHLORIDE
     Indication: Motion sickness
     Dosage: OTHER QUANTITY : 2 TABLET(S);?OTHER FREQUENCY : EVERY 4 TO 6 HOURS;?
     Route: 048

REACTIONS (3)
  - Product blister packaging issue [None]
  - Product communication issue [None]
  - Product label confusion [None]

NARRATIVE: CASE EVENT DATE: 20221228
